FAERS Safety Report 5523760-5 (Version None)
Quarter: 2007Q4

REPORT INFORMATION
  Report Type: 
  Country: None (occurrence: None)
  Receive Date: 20071121
  Receipt Date: 20071119
  Transmission Date: 20080405
  Serious: Yes (Other)
  Sender: FDA-Public Use
  Company Number: US-BRISTOL-MYERS SQUIBB COMPANY-13989868

PATIENT
  Sex: Male

DRUGS (5)
  1. ETOPOSIDE [Suspect]
  2. CYCLOPHOSPHAMIDE [Suspect]
  3. METHOTREXATE [Suspect]
     Indication: GRAFT VERSUS HOST DISEASE
  4. CYCLOSPORINE [Suspect]
     Indication: GRAFT VERSUS HOST DISEASE
  5. RADIATION THERAPY [Suspect]

REACTIONS (2)
  - GRAFT VERSUS HOST DISEASE [None]
  - SQUAMOUS CELL CARCINOMA [None]
